FAERS Safety Report 4687482-5 (Version None)
Quarter: 2005Q2

REPORT INFORMATION
  Report Type: 
  Country: None (occurrence: None)
  Receive Date: 20050608
  Receipt Date: 20050608
  Transmission Date: 20051028
  Serious: No
  Sender: FDA-Public Use
  Company Number: None

PATIENT
  Age: 74 Year
  Sex: Female
  Weight: 73 kg

DRUGS (2)
  1. PANTOPRAZOLE    40 MG   WYETH [Suspect]
     Indication: PROPHYLAXIS
     Dosage: 40 MG    DAILY    ORAL
     Route: 048
     Dates: start: 20050518, end: 20050523
  2. PANTOPRAZOLE    40 MG   WYETH [Suspect]
     Indication: STRESS ULCER
     Dosage: 40 MG    DAILY    ORAL
     Route: 048
     Dates: start: 20050518, end: 20050523

REACTIONS (1)
  - THROMBOCYTOPENIA [None]
